FAERS Safety Report 5301973-5 (Version None)
Quarter: 2007Q2

REPORT INFORMATION
  Report Type: 
  Country: None (occurrence: None)
  Receive Date: 20070419
  Receipt Date: 20070412
  Transmission Date: 20071010
  Serious: Yes (Other)
  Sender: FDA-Public Use
  Company Number: GB-GENENTECH-239874

PATIENT
  Age: 8 Year
  Sex: Female

DRUGS (1)
  1. NUTROPIN AQ [Suspect]
     Indication: DRUG USE FOR UNKNOWN INDICATION
     Dosage: 10 MG, UNK
     Dates: start: 20051101

REACTIONS (1)
  - BRAIN NEOPLASM [None]
